FAERS Safety Report 4778664-2 (Version None)
Quarter: 2005Q3

REPORT INFORMATION
  Report Type: 
  Country: None (occurrence: None)
  Receive Date: 20050922
  Receipt Date: 20050908
  Transmission Date: 20060218
  Serious: Yes (Hospitalization)
  Sender: FDA-Public Use
  Company Number: 27386

PATIENT
  Age: 80 Year
  Sex: Male

DRUGS (5)
  1. FLECAINIDE ACETATE [Suspect]
     Dosage: 250 MG (250 MG), ORAL
     Route: 048
     Dates: start: 20020601, end: 20050822
  2. COVERSYL (PERINDOPRIL) [Suspect]
     Dosage: 8 MG (4 MG, 2 IN 1 DAY (S), ORAL
     Route: 048
     Dates: start: 20040501, end: 20050817
  3. PLAVIX [Suspect]
     Dosage: 75 MG (75 MG, 1 IN 1 DAY(S)), ORAL
     Route: 048
     Dates: end: 20050801
  4. ZOCOR [Suspect]
     Dosage: 40 MG, ORAL
     Route: 048
     Dates: start: 20020401, end: 20050801
  5. TENORMIN [Suspect]
     Dosage: 100 MG, ORAL
     Route: 048
     Dates: start: 20011201, end: 20050812

REACTIONS (9)
  - CREPITATIONS [None]
  - DRUG INEFFECTIVE [None]
  - DYSPNOEA [None]
  - HYPOXIA [None]
  - NEUTROPHIL PERCENTAGE DECREASED [None]
  - PNEUMONITIS [None]
  - PULMONARY FIBROSIS [None]
  - PULMONARY HYPERTENSION [None]
  - RALES [None]
